FAERS Safety Report 9025588 (Version 1)
Quarter: 2013Q1

REPORT INFORMATION
  Report Type: Spontaneous
  Country: FR (occurrence: FR)
  Receive Date: 20130122
  Receipt Date: 20130122
  Transmission Date: 20140127
  Serious: Yes (Other)
  Sender: FDA-Public Use
  Company Number: FR-ASTRAZENECA-2013SE03102

PATIENT
  Sex: Female

DRUGS (3)
  1. XEROQUEL [Suspect]
     Route: 048
  2. AZOLEN [Interacting]
     Route: 065
  3. ANTI HIV DRUG [Interacting]
     Indication: HIV INFECTION
     Route: 065

REACTIONS (4)
  - Drug interaction [Recovered/Resolved]
  - Hypertension [Not Recovered/Not Resolved]
  - Dyspnoea [Recovering/Resolving]
  - Sedation [Recovered/Resolved]
